FAERS Safety Report 8101604-5 (Version None)
Quarter: 2012Q1

REPORT INFORMATION
  Report Type: 
  Country: None (occurrence: None)
  Receive Date: 20120129
  Receipt Date: 20110919
  Transmission Date: 20120608
  Serious: No
  Sender: FDA-Public Use
  Company Number: US-ABBOTT-11P-163-0855964-00

PATIENT
  Sex: Female
  Weight: 65.83 kg

DRUGS (2)
  1. BIRTH CONTROL PILL [Concomitant]
     Indication: CONTRACEPTION
  2. HUMIRA [Suspect]
     Indication: PSORIATIC ARTHROPATHY
     Dates: start: 20100101

REACTIONS (13)
  - ANTINUCLEAR ANTIBODY INCREASED [None]
  - MYALGIA [None]
  - LUPUS-LIKE SYNDROME [None]
  - DNA ANTIBODY [None]
  - JOINT SWELLING [None]
  - TENDON INJURY [None]
  - MUSCULOSKELETAL STIFFNESS [None]
  - MUSCLE DISORDER [None]
  - OEDEMA PERIPHERAL [None]
  - JOINT INJURY [None]
  - MUSCLE TIGHTNESS [None]
  - MUSCLE SWELLING [None]
  - APHTHOUS STOMATITIS [None]
